FAERS Safety Report 7129001-X (Version None)
Quarter: 2010Q4

REPORT INFORMATION
  Report Type: 
  Country: None (occurrence: None)
  Receive Date: 20101130
  Receipt Date: 20101122
  Transmission Date: 20110411
  Serious: Yes (Other)
  Sender: FDA-Public Use
  Company Number: NL-ABBOTT-10P-114-0683159-00

PATIENT
  Sex: Male
  Weight: 75 kg

DRUGS (4)
  1. HUMIRA [Suspect]
     Indication: RHEUMATOID ARTHRITIS
     Dates: start: 20040101
  2. METHOTREXATE [Suspect]
     Indication: PRODUCT USED FOR UNKNOWN INDICATION
  3. TIOTROPIUM FLUID FOR ATOMIZATION [Concomitant]
     Indication: CHRONIC OBSTRUCTIVE PULMONARY DISEASE
     Dosage: 2.5MCG DOSE CARTRIDGE (2 UNITS ONCE/DAY)
     Dates: start: 20070101
  4. TRAMADOL HCL [Concomitant]
     Indication: ARTHRALGIA
     Route: 048
     Dates: start: 20030101

REACTIONS (2)
  - EYE INFLAMMATION [None]
  - VISUAL ACUITY REDUCED [None]
